FAERS Safety Report 8473968-4 (Version None)
Quarter: 2012Q2

REPORT INFORMATION
  Report Type: 
  Country: None (occurrence: None)
  Receive Date: 20120628
  Receipt Date: 20120229
  Transmission Date: 20120825
  Serious: Yes (Death)
  Sender: FDA-Public Use
  Company Number: US-MYLANLABS-2012S1004654

PATIENT
  Age: 45 Year
  Sex: Female

DRUGS (9)
  1. CLOZAPINE [Suspect]
     Route: 048
  2. LOPERAMIDE [Concomitant]
     Route: 048
  3. DEXILANT [Concomitant]
     Route: 048
  4. TOPIRAMATE [Concomitant]
     Route: 048
  5. CLOZAPINE [Suspect]
     Route: 048
  6. METFORMIN HCL [Concomitant]
     Route: 048
  7. PROZAC [Concomitant]
     Route: 048
  8. DOCUSATE [Concomitant]
     Route: 048
  9. JANUVIA [Concomitant]
     Route: 048

REACTIONS (1)
  - DEATH [None]
